FAERS Safety Report 4446020-2 (Version None)
Quarter: 2004Q3

REPORT INFORMATION
  Report Type: 
  Country: None (occurrence: None)
  Receive Date: 20040910
  Receipt Date: 20040908
  Transmission Date: 20050211
  Serious: Yes (Hospitalization)
  Sender: FDA-Public Use
  Company Number: 90

PATIENT
  Age: 63 Year
  Sex: Male

DRUGS (3)
  1. MELPHALAN [Suspect]
     Indication: MULTIPLE MYELOMA
     Dosage: 40MGM2 SEE DOSAGE TEXT
     Route: 042
     Dates: start: 20040624, end: 20040721
  2. THALIDOMIDE [Suspect]
     Indication: MULTIPLE MYELOMA
     Route: 048
  3. DEXAMETHASONE [Concomitant]
     Dates: start: 20040624

REACTIONS (6)
  - ASTHENIA [None]
  - DIARRHOEA [None]
  - EMBOLIC CEREBRAL INFARCTION [None]
  - FATIGUE [None]
  - HAEMATOCHEZIA [None]
  - PANCYTOPENIA [None]
